FAERS Safety Report 4925713-4 (Version None)
Quarter: 2006Q1

REPORT INFORMATION
  Report Type: 
  Country: None (occurrence: None)
  Receive Date: 20060228
  Receipt Date: 20050128
  Transmission Date: 20060701
  Serious: Yes (Hospitalization)
  Sender: FDA-Public Use
  Company Number: US-GLAXOSMITHKLINE-A0542837A

PATIENT
  Age: 48 Year
  Sex: Female

DRUGS (2)
  1. LAMICTAL [Suspect]
     Indication: EPILEPSY
     Route: 048
     Dates: start: 20050115, end: 20050121
  2. MULTIPLE MEDICATIONS [Concomitant]

REACTIONS (2)
  - RASH [None]
  - STEVENS-JOHNSON SYNDROME [None]
